FAERS Safety Report 9403665 (Version 1)
Quarter: 2013Q3

REPORT INFORMATION
  Report Type: Spontaneous
  Country: DE (occurrence: DE)
  Receive Date: 20130717
  Receipt Date: 20130717
  Transmission Date: 20140515
  Serious: Yes (Other)
  Sender: FDA-Public Use
  Company Number: DE-THROMBOGENICS INC.-JET-2013-198

PATIENT
  Sex: 0

DRUGS (1)
  1. JETREA [Suspect]
     Indication: VITREOUS ADHESIONS
     Dosage: 125 ?G, ONE TIME DOSE
     Route: 031
     Dates: start: 20130527, end: 20130527

REACTIONS (2)
  - Cystoid macular oedema [Recovering/Resolving]
  - Visual acuity reduced [Recovering/Resolving]
